FAERS Safety Report 9272437 (Version 1)
Quarter: 2013Q2

REPORT INFORMATION
  Report Type: Spontaneous
  Country: CA (occurrence: CA)
  Receive Date: 20130506
  Receipt Date: 20130506
  Transmission Date: 20140414
  Serious: Yes (Other)
  Sender: FDA-Public Use
  Company Number: CA-ASTRAZENECA-2013SE28973

PATIENT
  Age: 69 Year
  Sex: Male

DRUGS (5)
  1. BRILINTA [Suspect]
     Indication: ANGINA PECTORIS
     Route: 048
     Dates: start: 20121223
  2. FLAVIX [Concomitant]
     Indication: ANGINA PECTORIS
     Route: 048
     Dates: start: 20121214, end: 20121221
  3. ASA [Concomitant]
     Route: 048
     Dates: start: 20121223
  4. CRESTOR [Concomitant]
     Indication: BLOOD CHOLESTEROL
     Route: 048
  5. TELMISARTAN [Concomitant]
     Route: 048

REACTIONS (3)
  - Paraesthesia [Not Recovered/Not Resolved]
  - Night sweats [Not Recovered/Not Resolved]
  - Sleep disorder due to a general medical condition [Unknown]
